FAERS Safety Report 5385045-X (Version None)
Quarter: 2007Q3

REPORT INFORMATION
  Report Type: 
  Country: None (occurrence: None)
  Receive Date: 20070712
  Receipt Date: 20070703
  Transmission Date: 20080115
  Serious: Yes (Hospitalization)
  Sender: FDA-Public Use
  Company Number: PHEH2007US09529

PATIENT
  Sex: Male
  Weight: 56.235 kg

DRUGS (2)
  1. ZELNORM [Suspect]
     Indication: CONSTIPATION
     Dosage: 6 MG, QD
     Route: 048
     Dates: end: 20070524
  2. AMITIZA [Suspect]

REACTIONS (2)
  - CONSTIPATION [None]
  - DISEASE RECURRENCE [None]
